FAERS Safety Report 15664071 (Version 4)
Quarter: 2018Q4

REPORT INFORMATION
  Report Type: Spontaneous
  Country: US (occurrence: US)
  Receive Date: 20181128
  Receipt Date: 20181226
  Transmission Date: 20190205
  Serious: Yes (Other)
  Sender: FDA-Public Use
  Company Number: US-CIPLA LTD.-2018US23164

PATIENT

DRUGS (8)
  1. TOPIRAMATE. [Suspect]
     Active Substance: TOPIRAMATE
     Dosage: 100 MG, UNK (DOSE TITRATED)
     Route: 065
  2. TOPIRAMATE. [Suspect]
     Active Substance: TOPIRAMATE
     Dosage: UNK
     Route: 065
     Dates: end: 20180926
  3. TOPIRAMATE. [Suspect]
     Active Substance: TOPIRAMATE
     Dosage: 150 MG, UNK
     Route: 065
     Dates: start: 20170807
  4. TOPIRAMATE. [Suspect]
     Active Substance: TOPIRAMATE
     Dosage: 200 MG, UNK
     Route: 048
     Dates: start: 20171114, end: 20180926
  5. CALCIUM VITAMIN D3 [Concomitant]
     Indication: PRODUCT USED FOR UNKNOWN INDICATION
     Dosage: UNK
     Route: 065
     Dates: start: 20070101, end: 20180731
  6. TRAZODONE [Concomitant]
     Active Substance: TRAZODONE HYDROCHLORIDE
     Indication: SOMNOLENCE
     Dosage: 100 MG, ONCE A DAY
     Route: 065
     Dates: start: 2006
  7. RIZATRIPTAN. [Concomitant]
     Active Substance: RIZATRIPTAN
     Indication: MIGRAINE
     Dosage: 10 MG, AS NEEDED
     Route: 065
     Dates: start: 201703
  8. TOPIRAMATE. [Suspect]
     Active Substance: TOPIRAMATE
     Indication: MIGRAINE
     Dosage: UNK
     Route: 065
     Dates: start: 20170301

REACTIONS (9)
  - Muscle spasms [Unknown]
  - Hypercalciuria [Not Recovered/Not Resolved]
  - Blood magnesium increased [Not Recovered/Not Resolved]
  - Sleep disorder [Unknown]
  - Blood phosphorus increased [Not Recovered/Not Resolved]
  - Alopecia [Not Recovered/Not Resolved]
  - Osteoporosis [Unknown]
  - Blood uric acid increased [Not Recovered/Not Resolved]
  - Blood calcium increased [Recovering/Resolving]

NARRATIVE: CASE EVENT DATE: 2017
